FAERS Safety Report 10025624 (Version 4)
Quarter: 2014Q2

REPORT INFORMATION
  Report Type: Spontaneous
  Country: US (occurrence: None)
  Receive Date: 20140314
  Receipt Date: 20140425
  Transmission Date: 20141212
  Serious: Yes (Death, Hospitalization)
  Sender: FDA-Public Use
  Company Number: UTC-045504

PATIENT
  Age: 63 Year
  Sex: Male

DRUGS (3)
  1. REMODULIN [Suspect]
     Indication: PULMONARY ARTERIAL HYPERTENSION
     Dosage: 47.52 UG/KG (0.033 UG/KG,1 IN 1 MIN),INTRAVENOUS
     Route: 041
     Dates: start: 20140113
  2. WARFARIN (WARFARIN) [Concomitant]
  3. ADCIRCA (TADALAFIL) [Concomitant]

REACTIONS (4)
  - Infection [None]
  - Cholecystitis infective [None]
  - Bacteraemia [None]
  - Sepsis [None]
